FAERS Safety Report 6145145-3 (Version None)
Quarter: 2009Q2

REPORT INFORMATION
  Report Type: 
  Country: None (occurrence: None)
  Receive Date: 20090406
  Receipt Date: 20090325
  Transmission Date: 20091009
  Serious: Yes (Hospitalization)
  Sender: FDA-Public Use
  Company Number: TR-ELI_LILLY_AND_COMPANY-TR200903007402

PATIENT
  Age: 61 Year
  Sex: Male

DRUGS (2)
  1. HUMALOG [Suspect]
     Indication: DIABETES MELLITUS
     Dosage: 7 U, DAILY (1/D)
     Route: 058
     Dates: start: 20070312
  2. LANTUS [Concomitant]
     Indication: DIABETES MELLITUS
     Dosage: 8 U, DAILY (1/D)
     Route: 065
     Dates: start: 20070319

REACTIONS (3)
  - BLOOD GLUCOSE INCREASED [None]
  - DRUG INEFFECTIVE [None]
  - HYPOGLYCAEMIC COMA [None]
